FAERS Safety Report 14248603 (Version 1)
Quarter: 2017Q4

REPORT INFORMATION
  Report Type: Spontaneous
  Country: SI (occurrence: SI)
  Receive Date: 20171203
  Receipt Date: 20171203
  Transmission Date: 20180321
  Serious: Yes (Hospitalization, Disabling)
  Sender: FDA-Public Use
  Company Number: None

PATIENT
  Age: 32 Year
  Sex: Female
  Weight: 51 kg

DRUGS (2)
  1. HYDROCORTISONE. [Concomitant]
     Active Substance: HYDROCORTISONE
  2. ELOCOM [Suspect]
     Active Substance: MOMETASONE FUROATE
     Indication: DERMATITIS ATOPIC
     Route: 061

REACTIONS (6)
  - Drug ineffective [None]
  - Suicidal ideation [None]
  - Withdrawal syndrome [None]
  - Depressed mood [None]
  - Adrenal suppression [None]
  - Insomnia [None]

NARRATIVE: CASE EVENT DATE: 20110901
